FAERS Safety Report 11179958 (Version 1)
Quarter: 2015Q2

REPORT INFORMATION
  Report Type: Spontaneous
  Country: US (occurrence: US)
  Receive Date: 20150611
  Receipt Date: 20150611
  Transmission Date: 20150821
  Serious: No
  Sender: FDA-Public Use
  Company Number: US-TEVA-553903USA

PATIENT
  Age: 46 Year
  Sex: Female

DRUGS (1)
  1. CAPECITABINE. [Suspect]
     Active Substance: CAPECITABINE
     Dosage: 1000 MILLIGRAM DAILY; ONE WEEK ON AND ONE WEEK OFF
     Route: 048
     Dates: start: 20141210

REACTIONS (2)
  - Burning sensation [Unknown]
  - Skin discolouration [Unknown]
